FAERS Safety Report 5709461-9 (Version None)
Quarter: 2008Q2

REPORT INFORMATION
  Report Type: 
  Country: None (occurrence: None)
  Receive Date: 20080417
  Receipt Date: 20080417
  Transmission Date: 20081010
  Serious: No
  Sender: FDA-Public Use
  Company Number: None

PATIENT
  Sex: Male
  Weight: 29.4838 kg

DRUGS (2)
  1. ABILIFY [Suspect]
     Indication: BIPOLAR DISORDER
     Dosage: 2.5 DAILY PO
     Route: 048
     Dates: start: 20070301, end: 20080301
  2. WELLBUTRIN [Concomitant]

REACTIONS (1)
  - TONGUE DISORDER [None]
